FAERS Safety Report 7692235-X (Version None)
Quarter: 2011Q3

REPORT INFORMATION
  Report Type: 
  Country: None (occurrence: None)
  Receive Date: 20110818
  Receipt Date: 20110812
  Transmission Date: 20111222
  Serious: Yes (Hospitalization, Other)
  Sender: FDA-Public Use
  Company Number: CA-BAYER-2011-054070

PATIENT
  Age: 41 Year
  Sex: Female

DRUGS (15)
  1. DOCUSATE SODIUM [Concomitant]
     Dosage: 200 MG, QD
     Route: 048
     Dates: start: 20110304, end: 20110309
  2. HYDROMORPHONE HCL [Concomitant]
     Dosage: UNK UNK, PRN
  3. MEPERIDINE HCL [Concomitant]
  4. MORPHINE SULFATE [Concomitant]
     Dosage: UNK UNK, PRN
  5. CELEBREX [Concomitant]
     Dosage: 400 MG, QD
     Route: 048
     Dates: start: 20110304, end: 20110308
  6. ACETAMINOPHEN [Concomitant]
     Dosage: UNK UNK, PRN
  7. KETOROLAC TROMETHAMINE [Concomitant]
     Dosage: UNK UNK, PRN
  8. ONDANSETRON [Concomitant]
     Dosage: UNK UNK, PRN
  9. FAMOTIDINE [Concomitant]
     Dosage: 20 MG, UNK
     Route: 042
     Dates: start: 20110304, end: 20110307
  10. LORAZEPAM [Concomitant]
  11. METOCLOPRAMIDE [Concomitant]
     Dosage: UNK UNK, PRN
  12. ATROPINE [Concomitant]
     Dosage: UNK UNK, PRN
  13. AVELOX [Suspect]
     Indication: PNEUMONIA
     Dosage: 400 MG, QD
     Route: 042
     Dates: start: 20110304, end: 20110308
  14. FENTANYL [Concomitant]
  15. HEPARIN SODIUM [Concomitant]
     Dosage: 5000 U, UNK
     Route: 058
     Dates: start: 20110304, end: 20110308

REACTIONS (5)
  - HYPOAESTHESIA [None]
  - EYELID PTOSIS [None]
  - PUPILS UNEQUAL [None]
  - PARAESTHESIA [None]
  - VISION BLURRED [None]
